FAERS Safety Report 7531895-0 (Version None)
Quarter: 2011Q2

REPORT INFORMATION
  Report Type: 
  Country: None (occurrence: None)
  Receive Date: 20110608
  Receipt Date: 20110526
  Transmission Date: 20111010
  Serious: Yes (Hospitalization)
  Sender: FDA-Public Use
  Company Number: US-BAYER-201034852NA

PATIENT
  Age: 27 Year
  Sex: Female
  Weight: 80 kg

DRUGS (6)
  1. YAZ [Suspect]
     Indication: PRODUCT USED FOR UNKNOWN INDICATION
     Route: 048
     Dates: start: 20080101, end: 20090101
  2. LORTAB [Concomitant]
     Dosage: 10 MG, UNK
     Dates: start: 20070613
  3. ASPIRIN [Concomitant]
     Dosage: 81 MG, UNK
  4. METHERGINE [Concomitant]
     Dosage: 0.2 MG, UNK
     Dates: start: 20071101, end: 20071201
  5. CYMBALTA [Concomitant]
     Dosage: 20 MG, BID
     Route: 048
     Dates: start: 20070706
  6. YASMIN [Suspect]
     Indication: PRODUCT USED FOR UNKNOWN INDICATION
     Route: 048

REACTIONS (7)
  - OVARIAN CYST [None]
  - PYREXIA [None]
  - CHOLECYSTITIS ACUTE [None]
  - NAUSEA [None]
  - VOMITING [None]
  - ABDOMINAL PAIN UPPER [None]
  - CHOLELITHIASIS [None]
